FAERS Safety Report 5425548-2 (Version None)
Quarter: 2007Q3

REPORT INFORMATION
  Report Type: 
  Country: None (occurrence: None)
  Receive Date: 20070824
  Receipt Date: 20070813
  Transmission Date: 20080115
  Serious: Yes (Other)
  Sender: FDA-Public Use
  Company Number: FR-PFIZER INC-2007062481

PATIENT
  Sex: Female
  Weight: 66 kg

DRUGS (4)
  1. SALAZOPYRINE [Suspect]
     Indication: RHEUMATOID ARTHRITIS
  2. SALMETEROL XINAFOATE [Concomitant]
  3. TELFAST [Concomitant]
  4. ALL OTHER THERAPEUTIC PRODUCTS [Concomitant]

REACTIONS (1)
  - EXTRASYSTOLES [None]
